FAERS Safety Report 24173792 (Version 1)
Quarter: 2024Q3

REPORT INFORMATION
  Report Type: Spontaneous
  Country: US (occurrence: US)
  Receive Date: 20240805
  Receipt Date: 20240805
  Transmission Date: 20241016
  Serious: No
  Sender: PADAGIS
  Company Number: US-PADAGIS-2024PAD01231

PATIENT

DRUGS (1)
  1. CICLOPIROX [Suspect]
     Active Substance: CICLOPIROX
     Indication: Onychomycosis
     Dosage: UNK
     Route: 061

REACTIONS (1)
  - Nail disorder [None]

NARRATIVE: CASE EVENT DATE: 20240721
